FAERS Safety Report 9526546 (Version 1)
Quarter: 2013Q1

REPORT INFORMATION
  Report Type: Spontaneous
  Country: US (occurrence: None)
  Receive Date: 20130305
  Receipt Date: 20130305
  Transmission Date: 20140127
  Serious: Yes (Hospitalization)
  Sender: FDA-Public Use
  Company Number: 163-21880-12031267

PATIENT
  Age: 70 Year
  Sex: Male
  Weight: 76.66 kg

DRUGS (9)
  1. REVLIMID [Suspect]
     Indication: PLASMA CELL MYELOMA
     Route: 048
     Dates: start: 20110126
  2. ACYCLOVIR (ACICLOVIR) (ACICLOVIR) [Concomitant]
  3. CALCIUM WITH VITAMIN D [Concomitant]
  4. COUMADIN (WARFARIN SODIUM) [Concomitant]
  5. DEXAMETHASONE [Concomitant]
  6. IMODIUM (LOPERAMIDE) [Concomitant]
  7. MULTIVITAMS [Concomitant]
  8. POTASSIUM [Concomitant]
  9. RECLAST (ZOLEDRONIC ACID) [Concomitant]

REACTIONS (1)
  - Intestinal obstruction [None]
